FAERS Safety Report 11175462 (Version 1)
Quarter: 2015Q2

REPORT INFORMATION
  Report Type: Spontaneous
  Country: None (occurrence: None)
  Receive Date: 20150608
  Receipt Date: 20150608
  Transmission Date: 20150821
  Serious: Yes (Death, Life-Threatening, Disabling)
  Sender: FDA-Public Use
  Company Number: None

PATIENT

DRUGS (2)
  1. PROLIXIN [Suspect]
     Active Substance: FLUPHENAZINE HYDROCHLORIDE
     Dosage: 17 INCRIMENTS ON THE INJECTION EVERY TWO WEEKS EVERY DAY INJECTION MOUTH
  2. COGENTIN [Suspect]
     Active Substance: BENZTROPINE MESYLATE
     Dosage: 17 INCRIMENTS ON THE INJECTION EVERY TWO WEEKS EVERY DAY INJECTION MOUTH

REACTIONS (7)
  - Neoplasm [None]
  - Somnolence [None]
  - Visual impairment [None]
  - Dizziness [None]
  - Arthritis [None]
  - Agitation [None]
  - Muscular weakness [None]

NARRATIVE: CASE EVENT DATE: 2011
